FAERS Safety Report 6233099-0 (Version None)
Quarter: 2009Q2

REPORT INFORMATION
  Report Type: 
  Country: None (occurrence: None)
  Receive Date: 20090617
  Receipt Date: 20090604
  Transmission Date: 20091009
  Serious: Yes (Hospitalization)
  Sender: FDA-Public Use
  Company Number: FR-ELI_LILLY_AND_COMPANY-FR200906000953

PATIENT
  Age: 44 Year
  Sex: Female

DRUGS (4)
  1. ZYPREXA [Suspect]
     Dosage: UNK, UNK
     Route: 048
     Dates: end: 20080101
  2. ABILIFY [Concomitant]
     Route: 048
     Dates: start: 20080102, end: 20090210
  3. SEROPRAM [Concomitant]
  4. LEVONORGESTREL AND ETHINYL ESTRADIOL [Concomitant]

REACTIONS (1)
  - INSULIN RESISTANT DIABETES [None]
